FAERS Safety Report 7736408-6 (Version None)
Quarter: 2011Q3

REPORT INFORMATION
  Report Type: 
  Country: None (occurrence: None)
  Receive Date: 20110908
  Receipt Date: 20110829
  Transmission Date: 20111222
  Serious: Yes (Other)
  Sender: FDA-Public Use
  Company Number: US-BAYER-2011-082635

PATIENT
  Sex: Female
  Weight: 65.76 kg

DRUGS (3)
  1. YAZ [Suspect]
     Dosage: UNK
     Dates: start: 20080901, end: 20090301
  2. YASMIN [Suspect]
     Dosage: UNK
     Dates: start: 20080901, end: 20090301
  3. DROSPIRENONE AND ETHINYL ESTRADIOL [Suspect]
     Dosage: UNK
     Dates: start: 20080901, end: 20090301

REACTIONS (2)
  - CHOLECYSTECTOMY [None]
  - GASTROENTERITIS [None]
